FAERS Safety Report 4852331-9 (Version None)
Quarter: 2005Q4

REPORT INFORMATION
  Report Type: 
  Country: None (occurrence: None)
  Receive Date: 20051213
  Receipt Date: 20050617
  Transmission Date: 20060501
  Serious: Yes (Other)
  Sender: FDA-Public Use
  Company Number: US-ROCHE-408433

PATIENT
  Age: 1 Hour
  Sex: Female
  Weight: 2.9 kg

DRUGS (3)
  1. ACCUTANE [Suspect]
     Indication: ACNE
     Dates: start: 19961111, end: 19970206
  2. DEPO-PROVERA [Concomitant]
     Indication: CONTRACEPTION
  3. STEROID [Concomitant]

REACTIONS (9)
  - ANOREXIA [None]
  - COLITIS ULCERATIVE [None]
  - DIARRHOEA [None]
  - DRUG EXPOSURE DURING PREGNANCY [None]
  - HAEMATOCHEZIA [None]
  - PREGNANCY [None]
  - PREMATURE LABOUR [None]
  - UMBILICAL CORD AROUND NECK [None]
  - WEIGHT DECREASED [None]
